FAERS Safety Report 8849728 (Version 3)
Quarter: 2013Q2

REPORT INFORMATION
  Report Type: Report from Study
  Country: JP (occurrence: JP)
  Receive Date: 20121019
  Receipt Date: 20130403
  Transmission Date: 20140414
  Serious: Yes (Other)
  Sender: FDA-Public Use
  Company Number: JP-PFIZER INC-2012259313

PATIENT
  Age: 63 Year
  Sex: Female
  Weight: 60 kg

DRUGS (8)
  1. FOSPHENYTOIN SODIUM [Suspect]
     Indication: CONVULSION PROPHYLAXIS
     Dosage: 16 MG/KG, ADMINISTRATION RATE: 30 MG/MIN
     Dates: start: 20121003, end: 20121003
  2. FOSPHENYTOIN SODIUM [Suspect]
     Dosage: 5 MG/KG, 10 MG/MIN
     Dates: start: 20121004
  3. REFLEX (MIRTAZAPINE) [Concomitant]
     Indication: DEPRESSION
     Dosage: 15 MG, UNK
     Route: 048
     Dates: end: 20121008
  4. PURSENNID [Concomitant]
     Indication: CONSTIPATION PROPHYLAXIS
     Dosage: 12 MG, UNK
     Route: 048
     Dates: end: 20121008
  5. GASTAR D [Concomitant]
     Indication: PROPHYLAXIS
     Dosage: 20 MG, UNK
     Route: 048
     Dates: end: 20121008
  6. METHYCOBAL [Concomitant]
     Indication: IIIRD NERVE PARALYSIS
     Dosage: 500 MG, UNK
     Route: 048
     Dates: start: 20121004, end: 20121008
  7. LOXONIN [Concomitant]
     Indication: PAIN
     Dosage: 180 MG, UNK
     Route: 048
     Dates: start: 20121002, end: 20121008
  8. KEPPRA [Concomitant]
     Dosage: 1000 MG, UNK
     Dates: start: 20121004

REACTIONS (1)
  - IIIrd nerve paralysis [Not Recovered/Not Resolved]
